FAERS Safety Report 9482419 (Version 2)
Quarter: 2013Q4

REPORT INFORMATION
  Report Type: Spontaneous
  Country: BR (occurrence: BR)
  Receive Date: 20130828
  Receipt Date: 20131028
  Transmission Date: 20140711
  Serious: Yes (Hospitalization)
  Sender: FDA-Public Use
  Company Number: BR-PFIZER INC-2013243577

PATIENT
  Age: 58 Year
  Sex: Male

DRUGS (2)
  1. SUTENT [Suspect]
     Indication: RENAL CANCER
     Dosage: 50 MG, 1X/DAY
     Route: 048
     Dates: start: 20121126, end: 20130719
  2. MAREVAN [Concomitant]

REACTIONS (7)
  - Cerebral haemorrhage [Unknown]
  - Diabetes mellitus [Unknown]
  - Disease progression [Unknown]
  - Renal cancer [Unknown]
  - Memory impairment [Unknown]
  - Confusional state [Unknown]
  - Thrombosis [Unknown]
